FAERS Safety Report 12506473 (Version 11)
Quarter: 2018Q3

REPORT INFORMATION
  Report Type: Report from Study
  Country: US (occurrence: US)
  Receive Date: 20160628
  Receipt Date: 20180906
  Transmission Date: 20181010
  Serious: Yes (Hospitalization)
  Sender: FDA-Public Use
  Company Number: US-ACTELION-A-US2016-138380

PATIENT
  Age: 16 Year
  Sex: Female
  Weight: 52.15 kg

DRUGS (7)
  1. ADCIRCA [Concomitant]
     Active Substance: TADALAFIL
  2. LETAIRIS [Concomitant]
     Active Substance: AMBRISENTAN
  3. COUMADIN [Concomitant]
     Active Substance: WARFARIN SODIUM
  4. OPSUMIT [Suspect]
     Active Substance: MACITENTAN
     Indication: PULMONARY ARTERIAL HYPERTENSION
     Dosage: 10 MG, QD
     Route: 048
     Dates: start: 20160531
  5. REMODULIN [Suspect]
     Active Substance: TREPROSTINIL
     Indication: PRODUCT USED FOR UNKNOWN INDICATION
     Dosage: UNK
     Route: 042
     Dates: start: 20170619
  6. REVATIO [Concomitant]
     Active Substance: SILDENAFIL CITRATE
  7. OPSUMIT [Suspect]
     Active Substance: MACITENTAN
     Dosage: 10 MG, QD
     Route: 048

REACTIONS (20)
  - Pain [Unknown]
  - Pleural effusion [Unknown]
  - Application site hypersensitivity [Unknown]
  - Application site rash [Unknown]
  - Skin infection [Unknown]
  - Hypersensitivity [Unknown]
  - Device issue [Unknown]
  - Blister [Unknown]
  - Dermatitis contact [Unknown]
  - Application site pruritus [Unknown]
  - Catheter site pruritus [Unknown]
  - Myalgia [Unknown]
  - Injection site pain [Unknown]
  - Application site pain [Unknown]
  - Application site vesicles [Unknown]
  - Injection site cellulitis [Unknown]
  - Laceration [Unknown]
  - Malaise [Unknown]
  - Dyspnoea [Unknown]
  - Catheter site pain [Unknown]

NARRATIVE: CASE EVENT DATE: 201605
